FAERS Safety Report 13427535 (Version 1)
Quarter: 2017Q2

REPORT INFORMATION
  Report Type: Spontaneous
  Country: FR (occurrence: FR)
  Receive Date: 20170411
  Receipt Date: 20170411
  Transmission Date: 20170830
  Serious: Yes (Other)
  Sender: FDA-Public Use
  Company Number: FR-GLAXOSMITHKLINE-FR2017GSK050346

PATIENT
  Age: 70 Year
  Sex: Female

DRUGS (2)
  1. NICOPASS [Suspect]
     Active Substance: NICOTINE
     Indication: SMOKING CESSATION THERAPY
     Dosage: UNK
     Route: 048
  2. NICOPASS [Suspect]
     Active Substance: NICOTINE
     Indication: SMOKING CESSATION THERAPY
     Dosage: 6 DF, QD
     Route: 048

REACTIONS (3)
  - Insomnia [Unknown]
  - Drug use disorder [Not Recovered/Not Resolved]
  - Incorrect drug administration duration [Unknown]
